FAERS Safety Report 9639538 (Version 2)
Quarter: 2013Q4

REPORT INFORMATION
  Report Type: Report from Study
  Country: CA (occurrence: CA)
  Receive Date: 20131023
  Receipt Date: 20131112
  Transmission Date: 20140711
  Serious: Yes (Hospitalization)
  Sender: FDA-Public Use
  Company Number: CA-BIOGENIDEC-2013BI100176

PATIENT
  Age: 35 Year
  Sex: Male

DRUGS (4)
  1. TYSABRI [Suspect]
     Indication: RELAPSING-REMITTING MULTIPLE SCLEROSIS
     Dates: start: 20121012
  2. DILAUDID [Concomitant]
     Indication: PROCEDURAL PAIN
     Route: 048
     Dates: start: 20131001
  3. TYLENOL [Concomitant]
     Indication: PROCEDURAL PAIN
     Route: 048
     Dates: start: 20131001
  4. COLACE [Concomitant]
     Indication: CONSTIPATION
     Route: 048
     Dates: start: 20131001

REACTIONS (1)
  - Intervertebral disc protrusion [Recovered/Resolved]
